FAERS Safety Report 23217691 (Version 1)
Quarter: 2023Q4

REPORT INFORMATION
  Report Type: Spontaneous
  Country: CN (occurrence: None)
  Receive Date: 20231122
  Receipt Date: 20231122
  Transmission Date: 20240110
  Serious: Yes (Other)
  Sender: FDA-Public Use
  Company Number: 2023A263687

PATIENT
  Age: 31 Year
  Sex: Female
  Weight: 61 kg

DRUGS (2)
  1. BUDESONIDE [Suspect]
     Active Substance: BUDESONIDE
     Indication: Bronchitis
     Dosage: 4.00 ML, QD
     Route: 055
     Dates: start: 20231024, end: 20231024
  2. TERBUTALINE SULFATE [Suspect]
     Active Substance: TERBUTALINE SULFATE
     Indication: Bronchitis
     Dosage: 5.00 MG, QD
     Route: 055
     Dates: start: 20231024, end: 20231024

REACTIONS (7)
  - Sinus tachycardia [Unknown]
  - Electrocardiogram PR shortened [Unknown]
  - Electrocardiogram T wave abnormal [Unknown]
  - Palpitations [Recovering/Resolving]
  - Throat irritation [Recovering/Resolving]
  - Nausea [Recovering/Resolving]
  - Vomiting [Recovering/Resolving]

NARRATIVE: CASE EVENT DATE: 20231024
